FAERS Safety Report 5762536-0 (Version None)
Quarter: 2008Q2

REPORT INFORMATION
  Report Type: 
  Country: None (occurrence: None)
  Receive Date: 20080609
  Receipt Date: 20080602
  Transmission Date: 20081010
  Serious: Yes (Other)
  Sender: FDA-Public Use
  Company Number: B0361156A

PATIENT
  Sex: Female

DRUGS (8)
  1. PAROXETINE HCL [Suspect]
     Route: 065
     Dates: start: 19990301, end: 20020101
  2. AMITRIPTYLINE HCL [Concomitant]
     Dates: start: 19730507
  3. LUSTRAL [Concomitant]
     Dates: start: 19960415, end: 19990316
  4. FLUOXETINE HCL [Concomitant]
     Dates: start: 20021216
  5. PROPRANOLOL [Concomitant]
     Dates: start: 20021001
  6. BUSPIRONE HCL [Concomitant]
     Dates: start: 20021001, end: 20021001
  7. LIVIAL [Concomitant]
     Indication: HORMONE REPLACEMENT THERAPY
     Dates: start: 20061201
  8. DIAZEPAM [Concomitant]

REACTIONS (23)
  - ABNORMAL DREAMS [None]
  - AGITATION [None]
  - ANXIETY [None]
  - ASTHENIA [None]
  - BACK PAIN [None]
  - CONFUSIONAL STATE [None]
  - DEPRESSED MOOD [None]
  - DEPRESSION [None]
  - DRUG WITHDRAWAL SYNDROME [None]
  - DYSKINESIA [None]
  - FATIGUE [None]
  - HYPERHIDROSIS [None]
  - INSOMNIA [None]
  - LETHARGY [None]
  - LOSS OF LIBIDO [None]
  - MUSCLE SPASMS [None]
  - NAUSEA [None]
  - NIGHT SWEATS [None]
  - PANIC REACTION [None]
  - SUICIDAL IDEATION [None]
  - TREMOR [None]
  - WEIGHT DECREASED [None]
  - WITHDRAWAL SYNDROME [None]
